FAERS Safety Report 10989356 (Version 3)
Quarter: 2015Q2

REPORT INFORMATION
  Report Type: Spontaneous
  Country: US (occurrence: US)
  Receive Date: 20150406
  Receipt Date: 20150512
  Transmission Date: 20150821
  Serious: No
  Sender: FDA-Public Use
  Company Number: US-PFIZER INC-2015112347

PATIENT
  Age: 80 Year
  Sex: Female
  Weight: 77 kg

DRUGS (10)
  1. XGEVA [Concomitant]
     Active Substance: DENOSUMAB
     Indication: BREAST CANCER METASTATIC
     Dosage: 1 DF, MONTHLY
     Route: 030
  2. AROMASIN [Suspect]
     Active Substance: EXEMESTANE
     Dosage: UNK, (25-10)
     Route: 048
     Dates: start: 20150325
  3. IPRATROPIUM BROMIDE. [Concomitant]
     Active Substance: IPRATROPIUM BROMIDE
     Indication: ASTHMA
  4. AROMASIN [Suspect]
     Active Substance: EXEMESTANE
     Indication: BREAST CANCER METASTATIC
     Dosage: 25 MG, 1X/DAY
     Route: 048
     Dates: start: 2013, end: 20150317
  5. ATROVENT [Concomitant]
     Active Substance: IPRATROPIUM BROMIDE
     Indication: BRONCHITIS CHRONIC
     Dosage: TWO PUFFS AS NEEDED
     Route: 055
  6. ATROVENT [Concomitant]
     Active Substance: IPRATROPIUM BROMIDE
     Indication: ASTHMA
  7. LIBRAX [Concomitant]
     Active Substance: CHLORDIAZEPOXIDE HYDROCHLORIDE\CLIDINIUM BROMIDE
     Indication: IRRITABLE BOWEL SYNDROME
     Dosage: 1 CAPSULE, AS NEEDED
     Route: 048
  8. IPRATROPIUM BROMIDE. [Concomitant]
     Active Substance: IPRATROPIUM BROMIDE
     Indication: BRONCHITIS CHRONIC
     Dosage: 1 DF, 2X/DAY (USED IN NEBULIZER TWO TREATMENTS DAILY, ONE IN THE MORNING AND ONE IN THE EVENING)
  9. AMLODIPINE [Concomitant]
     Active Substance: AMLODIPINE BESYLATE
     Indication: BLOOD PRESSURE
     Dosage: 2.5 MG, 1X/DAY (AT NIGHT)
     Route: 048
     Dates: start: 201407
  10. ATENOLOL. [Concomitant]
     Active Substance: ATENOLOL
     Indication: BLOOD PRESSURE
     Dosage: 100 MG, 2X/DAY (IN THE MORNING AND AT NIGHT)
     Route: 048

REACTIONS (5)
  - Fatigue [Unknown]
  - Drug dose omission [Recovered/Resolved]
  - Photopsia [Unknown]
  - Blood pressure increased [Unknown]
  - Migraine with aura [Unknown]

NARRATIVE: CASE EVENT DATE: 201503
